FAERS Safety Report 17859017 (Version 1)
Quarter: 2020Q2

REPORT INFORMATION
  Report Type: Spontaneous
  Country: US (occurrence: US)
  Receive Date: 20200603
  Receipt Date: 20200603
  Transmission Date: 20200714
  Serious: Yes (Death)
  Sender: FDA-Public Use
  Company Number: None

PATIENT
  Age: 99 Year
  Sex: Female
  Weight: 99.6 kg

DRUGS (1)
  1. REMDESIVIR. [Suspect]
     Active Substance: REMDESIVIR
     Indication: COVID-19
     Route: 040
     Dates: start: 20200526, end: 20200530

REACTIONS (4)
  - Mental status changes [None]
  - Somnolence [None]
  - Blood pressure decreased [None]
  - Atrial fibrillation [None]

NARRATIVE: CASE EVENT DATE: 20200531
